FAERS Safety Report 5635809-X (Version None)
Quarter: 2008Q1

REPORT INFORMATION
  Report Type: 
  Country: None (occurrence: None)
  Receive Date: 20080223
  Receipt Date: 20080214
  Transmission Date: 20080703
  Serious: Yes (Other)
  Sender: FDA-Public Use
  Company Number: US-ELI_LILLY_AND_COMPANY-US200802003298

PATIENT
  Sex: Female

DRUGS (2)
  1. HUMULIN R [Suspect]
  2. HUMULIN 70/30 [Suspect]

REACTIONS (7)
  - ARTERIOSCLEROSIS [None]
  - BLOOD GLUCOSE INCREASED [None]
  - CEREBROVASCULAR ACCIDENT [None]
  - DRUG INEFFECTIVE [None]
  - DYSPHAGIA [None]
  - GINGIVAL BLEEDING [None]
  - TONGUE ULCERATION [None]
